FAERS Safety Report 7944990-9 (Version None)
Quarter: 2011Q4

REPORT INFORMATION
  Report Type: 
  Country: None (occurrence: None)
  Receive Date: 20111129
  Receipt Date: 20111114
  Transmission Date: 20120403
  Serious: Yes (Other)
  Sender: FDA-Public Use
  Company Number: PL-ASTELLAS-2011EU008588

PATIENT
  Age: 17 Month
  Sex: Male

DRUGS (3)
  1. TACROLIMUS [Suspect]
     Dosage: UNK
     Route: 061
  2. PIMECROLIMUS [Suspect]
     Dosage: UNK
     Route: 061
  3. MAGNESIUM HYDROXIDE TAB [Suspect]
     Dosage: UNK
     Route: 061

REACTIONS (3)
  - OFF LABEL USE [None]
  - DRUG INEFFECTIVE [None]
  - DERMATITIS ATOPIC [None]
